FAERS Safety Report 12854780 (Version 1)
Quarter: 2016Q4

REPORT INFORMATION
  Report Type: Spontaneous
  Country: FR (occurrence: FR)
  Receive Date: 20161017
  Receipt Date: 20161017
  Transmission Date: 20170207
  Serious: Yes (Hospitalization)
  Sender: FDA-Public Use
  Company Number: FR-NOVOPROD-513909

PATIENT
  Age: 15 Year
  Sex: Male

DRUGS (3)
  1. NOVORAPID [Suspect]
     Active Substance: INSULIN ASPART
     Dosage: 150 U
     Route: 058
     Dates: start: 20160919, end: 20160919
  2. LANTUS [Concomitant]
     Active Substance: INSULIN GLARGINE
     Dosage: 10 IU, QD
     Route: 065
  3. NOVORAPID [Suspect]
     Active Substance: INSULIN ASPART
     Indication: POISONING DELIBERATE
     Dosage: 27 U, QD(8 UI THREE TIMES A DAY AND 3U DAILY ON EVENING)
     Route: 058

REACTIONS (8)
  - Vertigo [Recovered/Resolved]
  - Malaise [Recovered/Resolved]
  - Cold sweat [Recovered/Resolved]
  - Vision blurred [Recovered/Resolved]
  - Intentional overdose [Recovered/Resolved]
  - Tachycardia [Recovered/Resolved]
  - Tremor [Recovered/Resolved]
  - Hypoglycaemia [Recovered/Resolved]

NARRATIVE: CASE EVENT DATE: 20160919
